FAERS Safety Report 9633020 (Version 2)
Quarter: 2013Q4

REPORT INFORMATION
  Report Type: Report from Study
  Country: US (occurrence: US)
  Receive Date: 20131018
  Receipt Date: 20131101
  Transmission Date: 20140711
  Serious: Yes (Other)
  Sender: FDA-Public Use
  Company Number: US-ABBVIE-13P-163-1156418-00

PATIENT
  Sex: Female

DRUGS (14)
  1. HUMIRA [Suspect]
     Indication: CROHN^S DISEASE
     Route: 058
     Dates: start: 2005
  2. HUMIRA [Suspect]
     Indication: CROHN^S DISEASE
     Dosage: LOADING DOSE
     Dates: start: 2009, end: 2009
  3. HUMIRA [Suspect]
     Dosage: SECOND DOSE
     Dates: start: 2009, end: 2009
  4. HUMIRA [Suspect]
     Dates: start: 2009, end: 201011
  5. HUMIRA [Suspect]
     Dosage: LOADING DOSE
     Dates: start: 201102, end: 201102
  6. HUMIRA [Suspect]
     Dosage: SECOND DOSE
     Dates: start: 2011, end: 2011
  7. HUMIRA [Suspect]
     Dates: start: 2011
  8. VITAMIN B12 [Concomitant]
     Indication: PRODUCT USED FOR UNKNOWN INDICATION
  9. ENDOCET [Concomitant]
     Indication: PAIN
     Dosage: 3-5 DAILY
  10. CALCIUM [Concomitant]
     Indication: MINERAL SUPPLEMENTATION
  11. MAGNESIUM [Concomitant]
     Indication: MINERAL SUPPLEMENTATION
  12. ZINC [Concomitant]
     Indication: MINERAL SUPPLEMENTATION
  13. POTASSIUM PHOSPHATE [Concomitant]
     Indication: MINERAL SUPPLEMENTATION
  14. XANAX [Concomitant]
     Indication: ANTIDEPRESSANT THERAPY

REACTIONS (8)
  - Colectomy total [Recovered/Resolved]
  - Small intestinal resection [Recovered/Resolved]
  - Cholecystectomy [Unknown]
  - Drug ineffective [Unknown]
  - Injection site pain [Unknown]
  - Muscle spasms [Unknown]
  - Incorrect dose administered [Unknown]
  - Needle issue [Unknown]
